FAERS Safety Report 24097650 (Version 1)
Quarter: 2024Q3

REPORT INFORMATION
  Report Type: Report from Study
  Country: CH (occurrence: DE)
  Receive Date: 20240716
  Receipt Date: 20240716
  Transmission Date: 20241016
  Serious: Yes (Hospitalization)
  Sender: OPKO HEALTH
  Company Number: CH-OPKO PHARMACEUTICALS, LLC.-2024OPK00159

PATIENT
  Age: 46 Year
  Sex: Female

DRUGS (10)
  1. RAYALDEE [Suspect]
     Active Substance: CALCIFEDIOL
     Indication: Chronic kidney disease
     Dosage: 30 MCG, QD
     Dates: start: 20220701
  2. RAYALDEE [Suspect]
     Active Substance: CALCIFEDIOL
     Indication: Hyperparathyroidism secondary
  3. RAYALDEE [Suspect]
     Active Substance: CALCIFEDIOL
     Indication: Vitamin D deficiency
  4. MYCOPHENOLIC ACID [Concomitant]
     Active Substance: MYCOPHENOLIC ACID
     Indication: Chronic kidney disease
     Dosage: 1000 UNK, QD
     Route: 048
     Dates: start: 20160311
  5. SPIRONOLACTONE [Concomitant]
     Active Substance: SPIRONOLACTONE
     Indication: Hypertension
     Dosage: 50 UNK, QD
     Route: 048
     Dates: start: 20160516
  6. CARVEDILOL [Concomitant]
     Active Substance: CARVEDILOL
     Indication: Hypertension
     Dosage: 12.5 UNK, QD
     Route: 048
     Dates: start: 20190806
  7. ENTRESTO [Concomitant]
     Active Substance: SACUBITRIL\VALSARTAN
     Indication: Cardiac failure
     Dosage: 100 UNK, BID
     Route: 048
     Dates: start: 20220313
  8. TACROLIMUS [Concomitant]
     Active Substance: TACROLIMUS
     Indication: Chronic kidney disease
     Dosage: 3 MG, QD
     Route: 048
     Dates: start: 20220718
  9. SODIUM BICARBONATE [Concomitant]
     Active Substance: SODIUM BICARBONATE
     Indication: Hypertension
     Dosage: UNK, QID
     Route: 048
     Dates: start: 20220714
  10. ROXADUSTAT [Concomitant]
     Active Substance: ROXADUSTAT
     Indication: Chronic kidney disease
     Dosage: 20 MG, QD
     Route: 048
     Dates: start: 20220731

REACTIONS (1)
  - Diarrhoea [Recovered/Resolved]

NARRATIVE: CASE EVENT DATE: 20231001
